FAERS Safety Report 17264974 (Version 6)
Quarter: 2020Q3

REPORT INFORMATION
  Report Type: Report from Study
  Country: US (occurrence: US)
  Receive Date: 20200113
  Receipt Date: 20200810
  Transmission Date: 20201102
  Serious: Yes (Death, Hospitalization)
  Sender: FDA-Public Use
  Company Number: US-ACTELION-A-NJ2020-200431

PATIENT
  Age: 74 Year
  Sex: Male
  Weight: 63.49 kg

DRUGS (1)
  1. OPSUMIT [Suspect]
     Active Substance: MACITENTAN
     Indication: PULMONARY ARTERIAL HYPERTENSION
     Dosage: 10 MG, QD
     Route: 048
     Dates: start: 20191226

REACTIONS (5)
  - Chronic obstructive pulmonary disease [Fatal]
  - Pneumonia [Unknown]
  - Dyspnoea [Unknown]
  - Cardiac failure congestive [Fatal]
  - Cardiac disorder [Unknown]

NARRATIVE: CASE EVENT DATE: 20191230
